FAERS Safety Report 16710295 (Version 1)
Quarter: 2019Q4

REPORT INFORMATION
  Report Type: Spontaneous
  Country: US (occurrence: US)
  Receive Date: 20190815
  Receipt Date: 20190815
  Transmission Date: 20200122
  Serious: Yes (Hospitalization)
  Sender: FDA-Public Use
  Company Number: None

PATIENT
  Age: 19 Year
  Sex: Female
  Weight: 67.6 kg

DRUGS (1)
  1. INTRAVENOUS IMMUNE GLOBULIN [Suspect]
     Active Substance: HUMAN IMMUNOGLOBULIN G
     Indication: SMALL FIBRE NEUROPATHY
     Dates: start: 20190807, end: 20190808

REACTIONS (1)
  - Meningitis aseptic [None]

NARRATIVE: CASE EVENT DATE: 20190809
